FAERS Safety Report 19710935 (Version 2)
Quarter: 2021Q3

REPORT INFORMATION
  Report Type: Spontaneous
  Country: JP (occurrence: JP)
  Receive Date: 20210817
  Receipt Date: 20210824
  Transmission Date: 20211014
  Serious: Yes (Other)
  Sender: FDA-Public Use
  Company Number: JP-ABBVIE-21K-087-4041973-00

PATIENT
  Sex: Male

DRUGS (2)
  1. IMBRUVICA [Suspect]
     Active Substance: IBRUTINIB
     Indication: MANTLE CELL LYMPHOMA REFRACTORY
     Route: 048
     Dates: start: 20210805, end: 20210806
  2. IMBRUVICA [Suspect]
     Active Substance: IBRUTINIB
     Indication: MANTLE CELL LYMPHOMA REFRACTORY
     Route: 048
     Dates: start: 20210809

REACTIONS (3)
  - Disseminated intravascular coagulation [Not Recovered/Not Resolved]
  - Mantle cell lymphoma recurrent [Not Recovered/Not Resolved]
  - Lymphocytosis [Not Recovered/Not Resolved]

NARRATIVE: CASE EVENT DATE: 202108
